FAERS Safety Report 5829994-4 (Version None)
Quarter: 2008Q3

REPORT INFORMATION
  Report Type: 
  Country: None (occurrence: None)
  Receive Date: 20080731
  Receipt Date: 20080731
  Transmission Date: 20090109
  Serious: Yes (Death)
  Sender: FDA-Public Use
  Company Number: None

PATIENT
  Age: 58 Year
  Sex: Male
  Weight: 91 kg

DRUGS (4)
  1. METHOTREXATE [Suspect]
     Indication: LYMPHOMA
     Dates: start: 20080516, end: 20080517
  2. METHOTREXATE [Suspect]
     Indication: METASTASES TO CENTRAL NERVOUS SYSTEM
     Dates: start: 20080516, end: 20080517
  3. METHOTREXATE [Suspect]
     Indication: LYMPHOMA
     Dates: start: 20080612, end: 20080613
  4. METHOTREXATE [Suspect]
     Indication: METASTASES TO CENTRAL NERVOUS SYSTEM
     Dates: start: 20080612, end: 20080613

REACTIONS (22)
  - ABSCESS [None]
  - BLISTER [None]
  - BLOOD TEST ABNORMAL [None]
  - CARDIAC DISORDER [None]
  - COMA [None]
  - DIARRHOEA HAEMORRHAGIC [None]
  - DYSPNOEA [None]
  - HAEMORRHAGE [None]
  - HYPOPHAGIA [None]
  - LIP ULCERATION [None]
  - LIVER INJURY [None]
  - MELAENA [None]
  - NAUSEA [None]
  - PAIN [None]
  - PYREXIA [None]
  - RENAL DISORDER [None]
  - SKIN DISCOLOURATION [None]
  - SKIN DISORDER [None]
  - SKIN INFECTION [None]
  - SUBCUTANEOUS ABSCESS [None]
  - SWELLING [None]
  - VOMITING [None]
